FAERS Safety Report 9870370 (Version 1)
Quarter: 2014Q1

REPORT INFORMATION
  Report Type: Spontaneous
  Country: US (occurrence: None)
  Receive Date: 20140204
  Receipt Date: 20140204
  Transmission Date: 20141002
  Serious: Yes (Hospitalization)
  Sender: FDA-Public Use
  Company Number: None

PATIENT
  Age: 16 Year
  Sex: Female
  Weight: 54.43 kg

DRUGS (1)
  1. HUMIRA [Suspect]
     Indication: CROHN^S DISEASE
     Dosage: 1 INJECTION EVERY OTHER WEEK  EVERY OTHER WEEK GIVEN INTO/UNDER THE SKIN
     Route: 058

REACTIONS (5)
  - Paraesthesia [None]
  - Burning sensation [None]
  - Hypoaesthesia [None]
  - Pain in extremity [None]
  - Musculoskeletal disorder [None]
